FAERS Safety Report 15325562 (Version 1)
Quarter: 2018Q3

REPORT INFORMATION
  Report Type: Spontaneous
  Country: US (occurrence: US)
  Receive Date: 20180822
  Receipt Date: 20180822
  Transmission Date: 20181010
  Serious: Yes (Disabling, Other)
  Sender: FDA-Public Use
  Company Number: None

PATIENT
  Age: 50 Year
  Sex: Female
  Weight: 65.7 kg

DRUGS (15)
  1. CLARITIN [Concomitant]
     Active Substance: LORATADINE
  2. ALLERTEC [Concomitant]
     Active Substance: CETIRIZINE HYDROCHLORIDE
  3. ACYCLOVIR. [Concomitant]
     Active Substance: ACYCLOVIR
  4. TEMAZEPAM 30MG [Suspect]
     Active Substance: TEMAZEPAM
     Indication: SLEEP DISORDER
     Dosage: ?          QUANTITY:1 CAPSULE(S);?
     Route: 048
     Dates: start: 20140215, end: 20180722
  5. DIAZEPAM 10 MG [Suspect]
     Active Substance: DIAZEPAM
  6. TRAZODONE [Concomitant]
     Active Substance: TRAZODONE HYDROCHLORIDE
  7. BUPROPRION SR [Concomitant]
     Active Substance: BUPROPION
  8. CYCLOBENZAPRINE. [Concomitant]
     Active Substance: CYCLOBENZAPRINE
  9. MULTIVITAMIN [Concomitant]
     Active Substance: VITAMINS
  10. TYLENOL [Concomitant]
     Active Substance: ACETAMINOPHEN
  11. GLUCOSAMINECHONDROTIN [Concomitant]
  12. ALEVE [Concomitant]
     Active Substance: NAPROXEN SODIUM
  13. CALCIUMD3 [Concomitant]
  14. TEMAZEPAM 30MG [Suspect]
     Active Substance: TEMAZEPAM
     Indication: ANXIETY
     Dosage: ?          QUANTITY:1 CAPSULE(S);?
     Route: 048
     Dates: start: 20140215, end: 20180722
  15. GABAPENTIN. [Concomitant]
     Active Substance: GABAPENTIN

REACTIONS (5)
  - Amnesia [None]
  - Visual impairment [None]
  - Drug withdrawal syndrome [None]
  - Insomnia [None]
  - Incorrect drug administration duration [None]

NARRATIVE: CASE EVENT DATE: 20180528
